FAERS Safety Report 13926407 (Version 1)
Quarter: 2017Q3

REPORT INFORMATION
  Report Type: Spontaneous
  Country: US (occurrence: None)
  Receive Date: 20170831
  Receipt Date: 20170831
  Transmission Date: 20171127
  Serious: No
  Sender: FDA-Public Use
  Company Number: None

PATIENT
  Age: 39 Year
  Sex: Female
  Weight: 112.5 kg

DRUGS (1)
  1. FERRLECIT [Suspect]
     Active Substance: SODIUM FERRIC GLUCONATE COMPLEX
     Indication: IRON DEFICIENCY ANAEMIA
     Dosage: 7/15, 8/5, 8/12 AND 8/19/17
     Route: 042

REACTIONS (3)
  - Eye swelling [None]
  - Infusion related reaction [None]
  - Eye pruritus [None]

NARRATIVE: CASE EVENT DATE: 20170819
